FAERS Safety Report 8346225-4 (Version None)
Quarter: 2012Q2

REPORT INFORMATION
  Report Type: 
  Country: None (occurrence: None)
  Receive Date: 20120509
  Receipt Date: 20120424
  Transmission Date: 20120825
  Serious: Yes (Hospitalization)
  Sender: FDA-Public Use
  Company Number: US-BAYER-2012-040193

PATIENT
  Age: 58 Year
  Sex: Male
  Weight: 106.58 kg

DRUGS (5)
  1. ZITHROMAX [Suspect]
     Indication: CHILLS
  2. GABAPENTIN [Suspect]
     Indication: ANXIETY
     Dosage: 300 MG, TID
     Dates: start: 20090101
  3. ANTIBIOTICS [Suspect]
     Indication: CHILLS
  4. PRILOSEC [Concomitant]
     Indication: HIATUS HERNIA
     Dosage: 20 MG, BID
  5. CIPROFLOXACIN HCL [Suspect]
     Indication: CHILLS
     Dosage: UNK

REACTIONS (4)
  - RESPIRATORY DISORDER [None]
  - PNEUMONIA [None]
  - CHILLS [None]
  - LUNG DISORDER [None]
